FAERS Safety Report 7061986-2 (Version None)
Quarter: 2010Q4

REPORT INFORMATION
  Report Type: 
  Country: None (occurrence: None)
  Receive Date: 20101026
  Receipt Date: 20101014
  Transmission Date: 20110411
  Serious: Yes (Death, Life-Threatening, Hospitalization)
  Sender: FDA-Public Use
  Company Number: JP-PFIZER INC-2010055145

PATIENT
  Age: 45 Year
  Sex: Female
  Weight: 68 kg

DRUGS (17)
  1. FARMORUBICIN [Suspect]
     Indication: BREAST CANCER
     Dosage: 140 MG, 1X/3WEEKS
     Route: 042
     Dates: start: 20090106, end: 20090106
  2. FARMORUBICIN [Suspect]
     Dosage: 140 MG, 1X/3WEEKS
     Route: 042
     Dates: start: 20090217, end: 20090217
  3. FARMORUBICIN [Suspect]
     Dosage: 140 MG, 1X/3WEEKS
     Route: 042
     Dates: start: 20090127, end: 20090127
  4. FARMORUBICIN [Suspect]
     Dosage: 140 MG, 1X/3WEEKS
     Route: 042
     Dates: start: 20090310, end: 20090310
  5. FLUOROURACIL [Suspect]
     Indication: BREAST CANCER
     Dosage: 700 MG, 1X/3 WEEK
     Route: 042
     Dates: start: 20090106, end: 20090106
  6. FLUOROURACIL [Suspect]
     Dosage: 700 MG, 1X/3 WEEK
     Route: 042
     Dates: start: 20090127, end: 20090127
  7. FLUOROURACIL [Suspect]
     Dosage: 700 MG, 1X/3 WEEK
     Route: 042
     Dates: start: 20090217, end: 20090217
  8. FLUOROURACIL [Suspect]
     Dosage: 700 MG, 1X/3 WEEK
     Route: 042
     Dates: start: 20090310, end: 20090310
  9. DECADRON [Suspect]
     Indication: BREAST CANCER
     Dosage: 16.5 MG, 1X/3WEEK
     Route: 042
     Dates: start: 20090106, end: 20090106
  10. DECADRON [Suspect]
     Dosage: 16.5 MG, 1X/3WEEK
     Route: 042
     Dates: start: 20090127, end: 20090127
  11. DECADRON [Suspect]
     Dosage: 16.5 MG, 1X/3WEEK
     Route: 042
     Dates: start: 20090217, end: 20090217
  12. DECADRON [Suspect]
     Dosage: 16.5 MG, 1X/3WEEK
     Route: 042
     Dates: start: 20090310, end: 20090310
  13. ENDOXAN [Suspect]
     Indication: BREAST CANCER
     Dosage: 700 MG, 1X/3WEEK
     Route: 041
     Dates: start: 20090106, end: 20090106
  14. ENDOXAN [Suspect]
     Dosage: 700 MG, 1X/3WEEK
     Route: 041
     Dates: start: 20090127, end: 20090127
  15. ENDOXAN [Suspect]
     Dosage: 700 MG, 1X/3WEEK
     Route: 041
     Dates: start: 20090217, end: 20090217
  16. ENDOXAN [Suspect]
     Dosage: 700 MG, 1X/3WEEK
     Route: 041
     Dates: start: 20090310, end: 20090310
  17. NEUTROGIN [Concomitant]
     Indication: NEUTROPENIA
     Dosage: 0.1 MG, 17 TIMES IN TOTAL
     Route: 058
     Dates: start: 20090120, end: 20090327

REACTIONS (1)
  - HEPATITIS B [None]
